FAERS Safety Report 12215807 (Version 7)
Quarter: 2016Q2

REPORT INFORMATION
  Report Type: Spontaneous
  Country: US (occurrence: US)
  Receive Date: 20160328
  Receipt Date: 20160607
  Transmission Date: 20160815
  Serious: Yes (Death, Hospitalization)
  Sender: FDA-Public Use
  Company Number: US-ACTELION-A-NJ2016-133319

PATIENT
  Age: 56 Year
  Sex: Female

DRUGS (2)
  1. VELETRI [Suspect]
     Active Substance: EPOPROSTENOL
     Indication: PULMONARY HYPERTENSION
     Dosage: 5.32 NG/KG, PER MIN
     Route: 042
     Dates: start: 20160308, end: 20160516
  2. ADCIRCA [Concomitant]
     Active Substance: TADALAFIL

REACTIONS (11)
  - Decreased appetite [Unknown]
  - Asthenia [Unknown]
  - Pain in jaw [Recovering/Resolving]
  - Systemic lupus erythematosus [Unknown]
  - Dyspnoea [Unknown]
  - Pyrexia [Unknown]
  - White blood cell count increased [Unknown]
  - Pneumonia [Recovering/Resolving]
  - Headache [Unknown]
  - Urine analysis abnormal [Unknown]
  - Death [Fatal]

NARRATIVE: CASE EVENT DATE: 20160516
